FAERS Safety Report 16975959 (Version 1)
Quarter: 2019Q4

REPORT INFORMATION
  Report Type: Spontaneous
  Country: DE (occurrence: DE)
  Receive Date: 20191030
  Receipt Date: 20191030
  Transmission Date: 20200122
  Serious: Yes (Congenital Anomaly, Other)
  Sender: FDA-Public Use
  Company Number: DE-BAUSCH-BL-2019-058964

PATIENT
  Sex: Male

DRUGS (7)
  1. ADRIAMYCIN [Suspect]
     Active Substance: DOXORUBICIN HYDROCHLORIDE
     Indication: PRODUCT USED FOR UNKNOWN INDICATION
     Dosage: THE SUSPECT MEDICATION WAS TAKEN BY THE FATHER
     Route: 065
     Dates: end: 201207
  2. BLEOMYCIN [Suspect]
     Active Substance: BLEOMYCIN SULFATE
     Indication: PRODUCT USED FOR UNKNOWN INDICATION
     Dosage: THE SUSPECT MEDICATION WAS TAKEN BY THE FATHER
     Route: 065
     Dates: end: 201207
  3. NATULAN [Suspect]
     Active Substance: PROCARBAZINE HYDROCHLORIDE
     Indication: PRODUCT USED FOR UNKNOWN INDICATION
     Dosage: THE SUSPECT MEDICATION WAS TAKEN BY THE FATHER
     Route: 065
     Dates: end: 201207
  4. ETOPOSID [Suspect]
     Active Substance: ETOPOSIDE
     Indication: PRODUCT USED FOR UNKNOWN INDICATION
     Dosage: THE SUSPECT MEDICATION WAS TAKEN BY THE FATHER
     Route: 065
     Dates: end: 201207
  5. PREDNISOLON [Suspect]
     Active Substance: PREDNISOLONE
     Indication: PRODUCT USED FOR UNKNOWN INDICATION
     Dosage: THE SUSPECT MEDICATION WAS TAKEN BY THE FATHER
     Route: 065
     Dates: end: 201207
  6. VINCRISTIN [Suspect]
     Active Substance: VINCRISTINE
     Indication: PRODUCT USED FOR UNKNOWN INDICATION
     Dosage: THE SUSPECT MEDICATION WAS TAKEN BY THE FATHER
     Route: 065
     Dates: end: 201207
  7. CYCLOPHOSPHAMID [Suspect]
     Active Substance: CYCLOPHOSPHAMIDE
     Indication: PRODUCT USED FOR UNKNOWN INDICATION
     Dosage: THE SUSPECT MEDICATION WAS TAKEN BY THE FATHER
     Route: 065
     Dates: end: 201207

REACTIONS (2)
  - Heart disease congenital [Not Recovered/Not Resolved]
  - Paternal exposure timing unspecified [Unknown]

NARRATIVE: CASE EVENT DATE: 20150220
